FAERS Safety Report 16159064 (Version 1)
Quarter: 2019Q2

REPORT INFORMATION
  Report Type: Spontaneous
  Country: CN (occurrence: CN)
  Receive Date: 20190404
  Receipt Date: 20190404
  Transmission Date: 20190711
  Serious: Yes (Death, Other)
  Sender: FDA-Public Use
  Company Number: CN-SA-2019SA092224

PATIENT
  Age: 70 Year
  Sex: Female

DRUGS (1)
  1. CLOPIDOGREL BISULFATE. [Suspect]
     Active Substance: CLOPIDOGREL BISULFATE
     Indication: ANTIPLATELET THERAPY
     Dosage: 75 MG, QD
     Route: 048

REACTIONS (8)
  - Condition aggravated [Fatal]
  - Mouth haemorrhage [Fatal]
  - Altered state of consciousness [Fatal]
  - Blood lactate dehydrogenase increased [Unknown]
  - Thrombotic thrombocytopenic purpura [Fatal]
  - Platelet count decreased [Fatal]
  - Myocardial infarction [Fatal]
  - Disseminated intravascular coagulation [Fatal]
